FAERS Safety Report 7157189-3 (Version None)
Quarter: 2010Q4

REPORT INFORMATION
  Report Type: 
  Country: None (occurrence: None)
  Receive Date: 20101214
  Receipt Date: 20091218
  Transmission Date: 20110411
  Serious: No
  Sender: FDA-Public Use
  Company Number: US-ASTRAZENECA-2009SE32880

PATIENT
  Age: 44 Year
  Sex: Male
  Weight: 81.6 kg

DRUGS (5)
  1. CRESTOR [Suspect]
     Indication: BLOOD CHOLESTEROL INCREASED
     Route: 048
     Dates: start: 20080101
  2. CRESTOR [Suspect]
     Route: 048
     Dates: start: 20080101
  3. CRESTOR [Suspect]
     Route: 048
     Dates: start: 20090101
  4. CRESTOR [Suspect]
     Route: 048
     Dates: start: 20090101, end: 20091216
  5. FISH OIL [Concomitant]

REACTIONS (8)
  - ABDOMINAL DISCOMFORT [None]
  - BLOOD CHOLESTEROL INCREASED [None]
  - ERYTHEMA [None]
  - HEADACHE [None]
  - HYPOGEUSIA [None]
  - OEDEMA PERIPHERAL [None]
  - PRURITUS [None]
  - SKIN HAEMORRHAGE [None]
